FAERS Safety Report 14635949 (Version 2)
Quarter: 2018Q1

REPORT INFORMATION
  Report Type: Spontaneous
  Country: US (occurrence: US)
  Receive Date: 20180314
  Receipt Date: 20180314
  Transmission Date: 20180509
  Serious: Yes (Life-Threatening, Other)
  Sender: FDA-Public Use
  Company Number: US-BAUSCH-BL-2018-006661

PATIENT
  Age: 56 Year
  Sex: Female

DRUGS (6)
  1. VITAMIN K [Suspect]
     Active Substance: PHYTONADIONE
     Indication: LIVER INJURY
     Route: 065
  2. PANTOPRAZOLE [Suspect]
     Active Substance: PANTOPRAZOLE
     Indication: LIVER INJURY
     Route: 065
  3. LACTULOSE. [Suspect]
     Active Substance: LACTULOSE
     Indication: LIVER INJURY
     Route: 065
  4. CRIZOTINIB [Concomitant]
     Active Substance: CRIZOTINIB
     Indication: LUNG ADENOCARCINOMA STAGE IV
     Dosage: 12 HOURS
  5. RIFAXIMIN. [Suspect]
     Active Substance: RIFAXIMIN
     Indication: LIVER INJURY
     Route: 065
  6. ACETYLCYSTEINE. [Suspect]
     Active Substance: ACETYLCYSTEINE
     Indication: LIVER INJURY
     Route: 065

REACTIONS (1)
  - Drug ineffective [Unknown]
